FAERS Safety Report 6511065-5 (Version None)
Quarter: 2009Q4

REPORT INFORMATION
  Report Type: 
  Country: None (occurrence: None)
  Receive Date: 20091222
  Receipt Date: 20090220
  Transmission Date: 20100525
  Serious: No
  Sender: FDA-Public Use
  Company Number: US-ASTRAZENECA-2009UW04793

PATIENT
  Age: 911 Month
  Sex: Female

DRUGS (5)
  1. CRESTOR [Suspect]
     Indication: BLOOD CHOLESTEROL INCREASED
     Route: 048
     Dates: start: 20080701, end: 20090211
  2. CRESTOR [Suspect]
     Route: 048
     Dates: start: 20090218
  3. TOPROL-XL [Concomitant]
     Indication: HYPERTENSION
     Route: 048
  4. GLUCOPHAGE [Concomitant]
     Indication: TYPE 2 DIABETES MELLITUS
     Route: 048
  5. BENICAR [Concomitant]
     Indication: HYPERTENSION
     Route: 048

REACTIONS (3)
  - ALOPECIA [None]
  - MUSCLE SPASMS [None]
  - PAIN [None]
